FAERS Safety Report 8105007-9 (Version None)
Quarter: 2012Q1

REPORT INFORMATION
  Report Type: 
  Country: None (occurrence: None)
  Receive Date: 20120201
  Receipt Date: 20120123
  Transmission Date: 20120608
  Serious: No
  Sender: FDA-Public Use
  Company Number: JP-GLAXOSMITHKLINE-B0776525A

PATIENT
  Age: 46 Year
  Sex: Male

DRUGS (1)
  1. ARIXTRA [Suspect]
     Indication: EMBOLISM VENOUS
     Dosage: 10MG PER DAY
     Route: 058

REACTIONS (1)
  - NO ADVERSE EVENT [None]
